FAERS Safety Report 5630135-7 (Version None)
Quarter: 2008Q1

REPORT INFORMATION
  Report Type: 
  Country: None (occurrence: None)
  Receive Date: 20080219
  Receipt Date: 20080211
  Transmission Date: 20080703
  Serious: Yes (Disabling)
  Sender: FDA-Public Use
  Company Number: US-BAYER-200813816NA

PATIENT
  Age: 35 Year
  Sex: Female
  Weight: 59 kg

DRUGS (3)
  1. MIRENA [Suspect]
     Indication: CONTRACEPTION
     Route: 015
     Dates: start: 20030213
  2. MULTI-VITAMIN [Concomitant]
  3. VITAMIN D [Concomitant]

REACTIONS (5)
  - AMENORRHOEA [None]
  - DISABILITY [None]
  - METRORRHAGIA [None]
  - PROCEDURAL PAIN [None]
  - SYNCOPE VASOVAGAL [None]
